FAERS Safety Report 23771107 (Version 2)
Quarter: 2024Q3

REPORT INFORMATION
  Report Type: Report from Study
  Country: US (occurrence: US)
  Receive Date: 20240423
  Receipt Date: 20240704
  Transmission Date: 20241017
  Serious: Yes (Other)
  Sender: JOHNSON AND JOHNSON
  Company Number: US-JNJFOC-20240449803

PATIENT
  Age: 70 Year
  Sex: Male

DRUGS (6)
  1. ERLEADA [Suspect]
     Active Substance: APALUTAMIDE
     Indication: Prostate cancer
     Route: 048
     Dates: start: 20240124
  2. PANTOPRAZOLE [Concomitant]
     Active Substance: PANTOPRAZOLE
     Indication: Gastrooesophageal reflux disease
  3. ALLOPURINOL [Concomitant]
     Active Substance: ALLOPURINOL
     Indication: Gastrooesophageal reflux disease
  4. SELENIUM [Concomitant]
     Active Substance: SELENIUM
     Indication: Prostatic disorder
  5. SILDENAFIL [Concomitant]
     Active Substance: SILDENAFIL
     Indication: Erectile dysfunction
  6. SIMVASTATIN [Concomitant]
     Active Substance: SIMVASTATIN

REACTIONS (10)
  - Chemotherapy [Unknown]
  - Dry skin [Unknown]
  - Weight increased [Unknown]
  - Constipation [Unknown]
  - Pollakiuria [Unknown]
  - Dizziness [Unknown]
  - Muscle atrophy [Unknown]
  - Rash [Unknown]
  - Abdominal pain [Unknown]
  - Fatigue [Unknown]
